FAERS Safety Report 6462216-2 (Version None)
Quarter: 2009Q4

REPORT INFORMATION
  Report Type: 
  Country: None (occurrence: None)
  Receive Date: 20091130
  Receipt Date: 20091120
  Transmission Date: 20100525
  Serious: Yes (Hospitalization)
  Sender: FDA-Public Use
  Company Number: JP-BAYER-200913815BYL

PATIENT
  Age: 74 Year
  Sex: Male
  Weight: 63 kg

DRUGS (21)
  1. NEXAVAR [Suspect]
     Indication: RENAL CELL CARCINOMA
     Dosage: UNIT DOSE: 200 MG
     Route: 048
     Dates: start: 20090721, end: 20090831
  2. NEXAVAR [Suspect]
     Dosage: UNIT DOSE: 200 MG
     Route: 048
     Dates: start: 20090608, end: 20090621
  3. NEXAVAR [Suspect]
     Dosage: UNIT DOSE: 200 MG
     Route: 048
     Dates: start: 20090511, end: 20090524
  4. NEXAVAR [Suspect]
     Dosage: UNIT DOSE: 200 MG
     Route: 048
     Dates: start: 20090228, end: 20090324
  5. NEXAVAR [Suspect]
     Dosage: UNIT DOSE: 200 MG
     Route: 048
     Dates: start: 20090109, end: 20090206
  6. NEXAVAR [Suspect]
     Dosage: UNIT DOSE: 200 MG
     Route: 048
     Dates: start: 20090325, end: 20090406
  7. NEXAVAR [Suspect]
     Dosage: UNIT DOSE: 200 MG
     Route: 048
     Dates: start: 20090407, end: 20090420
  8. NEXAVAR [Suspect]
     Dosage: TOTAL DAILY DOSE: 800 MG  UNIT DOSE: 200 MG
     Route: 048
     Dates: start: 20081208, end: 20081219
  9. NEXAVAR [Suspect]
     Dosage: UNIT DOSE: 200 MG
     Route: 048
     Dates: start: 20090915, end: 20091008
  10. NEXAVAR [Suspect]
     Route: 048
  11. FERROMIA [Concomitant]
     Route: 048
     Dates: start: 20081114, end: 20081219
  12. GLYCYRON [Concomitant]
     Route: 048
     Dates: start: 20081121
  13. PROHEPARUM [Concomitant]
     Route: 048
     Dates: start: 20081121
  14. MARZULENE S [Concomitant]
     Route: 048
     Dates: start: 20081121
  15. JUZENTAIHOTO [Concomitant]
     Route: 048
     Dates: start: 20081204, end: 20090831
  16. HIRUDOID [Concomitant]
     Indication: PROPHYLAXIS
     Route: 061
     Dates: start: 20081205
  17. KENALOG [Concomitant]
     Route: 061
     Dates: start: 20090206, end: 20090210
  18. ALMETA [Concomitant]
     Route: 061
     Dates: start: 20090818, end: 20090825
  19. ALESION [Concomitant]
     Route: 048
     Dates: start: 20090818, end: 20090831
  20. EBASTINE [Concomitant]
     Route: 048
     Dates: start: 20090901, end: 20090914
  21. DERMOVATE [Concomitant]
     Route: 061
     Dates: start: 20090901, end: 20090908

REACTIONS (11)
  - BLOOD AMYLASE INCREASED [None]
  - BLOOD PRESSURE INCREASED [None]
  - ERYTHEMA [None]
  - GRANULOCYTE COUNT DECREASED [None]
  - HYPERTENSION [None]
  - PALMAR-PLANTAR ERYTHRODYSAESTHESIA SYNDROME [None]
  - PANCREATIC ENZYMES INCREASED [None]
  - PLATELET COUNT DECREASED [None]
  - SUBILEUS [None]
  - THROMBOCYTOPENIA [None]
  - TOXIC SKIN ERUPTION [None]
